FAERS Safety Report 21688841 (Version 3)
Quarter: 2022Q4

REPORT INFORMATION
  Report Type: Spontaneous
  Country: US (occurrence: US)
  Receive Date: 20221206
  Receipt Date: 20221220
  Transmission Date: 20230113
  Serious: No
  Sender: FDA-Public Use
  Company Number: US-ALKERMES INC.-ALK-2022-005817

PATIENT
  Sex: Female

DRUGS (1)
  1. VIVITROL [Suspect]
     Active Substance: NALTREXONE
     Indication: Alcoholism
     Dosage: 380 MILLIGRAM, QMO
     Route: 030
     Dates: start: 202211

REACTIONS (13)
  - Tremor [Recovering/Resolving]
  - Asthenia [Unknown]
  - Injection site reaction [Unknown]
  - Injection site mass [Unknown]
  - Injection site pain [Unknown]
  - Injection site swelling [Unknown]
  - Fatigue [Unknown]
  - Malaise [Recovering/Resolving]
  - Fluid intake reduced [Recovering/Resolving]
  - Feeding disorder [Recovering/Resolving]
  - Retching [Recovering/Resolving]
  - Somnolence [Recovering/Resolving]
  - Nausea [Unknown]

NARRATIVE: CASE EVENT DATE: 20220101
